FAERS Safety Report 5537002-8 (Version None)
Quarter: 2007Q4

REPORT INFORMATION
  Report Type: 
  Country: None (occurrence: None)
  Receive Date: 20071207
  Receipt Date: 20071127
  Transmission Date: 20080405
  Serious: Yes (Hospitalization, Other)
  Sender: FDA-Public Use
  Company Number: US-JNJFOC-20071110331

PATIENT
  Sex: Female
  Weight: 107.96 kg

DRUGS (6)
  1. DURAGESIC-100 [Suspect]
     Indication: BACK PAIN
     Route: 062
  2. EFFEXOR XR [Concomitant]
     Indication: DEPRESSION
     Route: 048
  3. LEXOXYL [Concomitant]
     Route: 048
  4. BACLOFEN [Concomitant]
     Indication: NEUROPATHY
     Route: 048
  5. POTASSIUM CHLORIDE [Concomitant]
     Route: 048
  6. FLOMAX [Concomitant]
     Indication: URINARY TRACT DISORDER
     Route: 048

REACTIONS (5)
  - APPLICATION SITE REACTION [None]
  - BLOOD PRESSURE INCREASED [None]
  - CATHETERISATION CARDIAC [None]
  - INAPPROPRIATE SCHEDULE OF DRUG ADMINISTRATION [None]
  - WRONG TECHNIQUE IN DRUG USAGE PROCESS [None]
